FAERS Safety Report 11047034 (Version 1)
Quarter: 2015Q2

REPORT INFORMATION
  Report Type: Spontaneous
  Country: SE (occurrence: None)
  Receive Date: 20150416
  Receipt Date: 20150416
  Transmission Date: 20150821
  Serious: Yes (Other)
  Sender: FDA-Public Use
  Company Number: 20150215

PATIENT
  Age: 57 Year
  Sex: Female

DRUGS (2)
  1. FERINJECT [Suspect]
     Active Substance: FERRIC CARBOXYMALTOSE
     Indication: CROHN^S DISEASE
     Dosage: 1 IN 3 M
     Route: 042
     Dates: start: 20141212, end: 20141212
  2. FERINJECT [Suspect]
     Active Substance: FERRIC CARBOXYMALTOSE
     Indication: HAEMORRHAGE
     Dosage: 1 IN 3 M
     Route: 042
     Dates: start: 20141212, end: 20141212

REACTIONS (7)
  - Cellulitis [None]
  - Pruritus [None]
  - Urticaria [None]
  - Blister [None]
  - Hypersensitivity [None]
  - Angioedema [None]
  - Herpes zoster [None]

NARRATIVE: CASE EVENT DATE: 20141214
